FAERS Safety Report 6710621-9 (Version None)
Quarter: 2010Q2

REPORT INFORMATION
  Report Type: 
  Country: None (occurrence: None)
  Receive Date: 20100504
  Receipt Date: 20100430
  Transmission Date: 20101027
  Serious: Yes (Hospitalization)
  Sender: FDA-Public Use
  Company Number: JP-MERCK-1004USA04799

PATIENT
  Age: 72 Year
  Sex: Female

DRUGS (4)
  1. AMARYL [Concomitant]
     Indication: HYPERGLYCAEMIA
     Route: 048
     Dates: start: 20091209
  2. JANUVIA [Suspect]
     Indication: HYPERGLYCAEMIA
     Route: 048
     Dates: start: 20100107
  3. ZOCOR [Concomitant]
     Indication: LOW DENSITY LIPOPROTEIN INCREASED
     Route: 048
     Dates: start: 20091125
  4. ASPIRIN [Concomitant]
     Route: 048
     Dates: start: 20091125

REACTIONS (2)
  - BLOOD ALKALINE PHOSPHATASE INCREASED [None]
  - GAMMA-GLUTAMYLTRANSFERASE INCREASED [None]
